FAERS Safety Report 16899157 (Version 1)
Quarter: 2019Q4

REPORT INFORMATION
  Report Type: Spontaneous
  Country: US (occurrence: US)
  Receive Date: 20191009
  Receipt Date: 20191009
  Transmission Date: 20200122
  Serious: Yes (Other)
  Sender: FDA-Public Use
  Company Number: US-PFIZER INC-2019434094

PATIENT
  Age: 17 Year
  Sex: Female

DRUGS (1)
  1. DILANTIN [Suspect]
     Active Substance: PHENYTOIN
     Dosage: UNK
     Route: 048

REACTIONS (5)
  - General physical health deterioration [Unknown]
  - Gait inability [Unknown]
  - Speech disorder [Unknown]
  - Cognitive disorder [Unknown]
  - Cerebellar atrophy [Unknown]
